FAERS Safety Report 20211424 (Version 1)
Quarter: 2021Q4

REPORT INFORMATION
  Report Type: Spontaneous
  Country: US (occurrence: None)
  Receive Date: 20211220
  Receipt Date: 20211220
  Transmission Date: 20220303
  Serious: Yes (Other)
  Sender: FDA-Public Use
  Company Number: None

PATIENT
  Age: 65 Year
  Sex: Male
  Weight: 78.12 kg

DRUGS (4)
  1. CARIPRAZINE [Suspect]
     Active Substance: CARIPRAZINE
     Dosage: FREQUENCY : DAILY;?
     Route: 048
     Dates: start: 20210916, end: 20211027
  2. MEMANTINE [Concomitant]
     Active Substance: MEMANTINE
  3. APIXABAN [Concomitant]
     Active Substance: APIXABAN
  4. ATORVASTATIN [Concomitant]
     Active Substance: ATORVASTATIN

REACTIONS (2)
  - Blood creatinine increased [None]
  - Drug ineffective [None]

NARRATIVE: CASE EVENT DATE: 20211026
